FAERS Safety Report 9269337 (Version 1)
Quarter: 2013Q2

REPORT INFORMATION
  Report Type: Spontaneous
  Country: US (occurrence: US)
  Receive Date: 20130503
  Receipt Date: 20130503
  Transmission Date: 20140414
  Serious: Yes (Hospitalization, Other)
  Sender: FDA-Public Use
  Company Number: US-JNJFOC-20130414172

PATIENT
  Age: 83 Year
  Sex: Female
  Weight: 68 kg

DRUGS (5)
  1. XARELTO [Suspect]
     Indication: CEREBROVASCULAR ACCIDENT PROPHYLAXIS
     Route: 048
  2. XARELTO [Suspect]
     Indication: ATRIAL FIBRILLATION
     Route: 048
  3. FLUCONAZOLE [Concomitant]
     Dosage: FOR 1 WEEK
     Route: 048
  4. LEVOFLOXACIN [Concomitant]
     Dosage: EVERY OTHER DAY
     Route: 065
  5. PREDNISONE [Concomitant]
     Route: 065

REACTIONS (4)
  - Pneumonia [Unknown]
  - International normalised ratio increased [Recovering/Resolving]
  - Sepsis [Unknown]
  - Blood creatinine increased [Recovering/Resolving]
